FAERS Safety Report 6577560-8 (Version None)
Quarter: 2010Q1

REPORT INFORMATION
  Report Type: 
  Country: None (occurrence: None)
  Receive Date: 20100211
  Receipt Date: 20100203
  Transmission Date: 20100710
  Serious: Yes (Other)
  Sender: FDA-Public Use
  Company Number: US-AMGEN-QUU382157

PATIENT
  Sex: Female
  Weight: 55.4 kg

DRUGS (12)
  1. ENBREL [Suspect]
     Indication: RHEUMATOID ARTHRITIS
     Route: 058
     Dates: start: 20061101
  2. PREDNISONE [Concomitant]
  3. ZANTAC [Concomitant]
  4. FLEXERIL [Concomitant]
  5. SYNTHROID [Concomitant]
  6. ESTRATEST [Concomitant]
  7. LORTAB [Concomitant]
  8. PROMETHAZINE [Concomitant]
  9. FEOSOL [Concomitant]
  10. TYLENOL-500 [Concomitant]
  11. TYLENOL PM [Concomitant]
  12. ALEVE (CAPLET) [Concomitant]

REACTIONS (4)
  - BACTERIAL INFECTION [None]
  - CONSTIPATION [None]
  - DIVERTICULUM [None]
  - SMALL INTESTINE ULCER [None]
